FAERS Safety Report 9832533 (Version 2)
Quarter: 2014Q1

REPORT INFORMATION
  Report Type: Spontaneous
  Country: IT (occurrence: IT)
  Receive Date: 20140121
  Receipt Date: 20140227
  Transmission Date: 20141002
  Serious: Yes (Death)
  Sender: FDA-Public Use
  Company Number: IT-BAYER-2014-006609

PATIENT
  Age: 11 Month
  Sex: Male

DRUGS (2)
  1. ASPIRINA [Suspect]
     Indication: INFLUENZA
     Dosage: UNK
     Dates: start: 20140110, end: 20140110
  2. PARACETAMOL [Suspect]
     Indication: PYREXIA
     Dosage: UNK
     Dates: start: 20140110, end: 20140110

REACTIONS (2)
  - Death [Fatal]
  - Cardiac arrest [Fatal]
